FAERS Safety Report 25630501 (Version 3)
Quarter: 2025Q3

REPORT INFORMATION
  Report Type: Report from Study
  Country: US (occurrence: US)
  Receive Date: 20250801
  Receipt Date: 20250919
  Transmission Date: 20251020
  Serious: No
  Sender: SUNOVION
  Company Number: US-SMPA-2025SPA009507AA

PATIENT
  Age: 87 Year
  Sex: Male

DRUGS (16)
  1. ORGOVYX [Suspect]
     Active Substance: RELUGOLIX
     Indication: Product used for unknown indication
     Route: 048
     Dates: start: 20250624, end: 20250624
  2. ORGOVYX [Suspect]
     Active Substance: RELUGOLIX
     Route: 048
  3. VITAMIN B COMPLEX [Concomitant]
     Active Substance: CYANOCOBALAMIN\DEXPANTHENOL\NIACINAMIDE\PYRIDOXINE HYDROCHLORIDE\RIBOFLAVIN 5^-PHOSPHATE SODIUM\THIA
  4. Bone Up [Concomitant]
     Route: 048
  5. Jarrow [Concomitant]
  6. COENZYME Q10 [Concomitant]
     Active Substance: DIETARY SUPPLEMENT\UBIDECARENONE
  7. VITAMINS [Concomitant]
     Active Substance: VITAMINS
  8. ELIQUIS [Concomitant]
     Active Substance: APIXABAN
  9. FENOFIBRATE [Concomitant]
     Active Substance: FENOFIBRATE
  10. LOSARTAN [Concomitant]
     Active Substance: LOSARTAN
  11. MAGNESIUM [Concomitant]
     Active Substance: MAGNESIUM
  12. UBIQUINOL [Concomitant]
     Active Substance: UBIQUINOL
  13. VITAMIN B12 [Concomitant]
     Active Substance: CYANOCOBALAMIN
  14. VITAMIN D3 [Concomitant]
     Active Substance: CHOLECALCIFEROL
  15. MENAQUINONE 6 [Concomitant]
     Active Substance: MENAQUINONE 6
  16. NUBEQA [Concomitant]
     Active Substance: DAROLUTAMIDE

REACTIONS (5)
  - Memory impairment [Unknown]
  - Emotional disorder [Unknown]
  - Irritability [Unknown]
  - Mood altered [Unknown]
  - Insomnia [Unknown]
